FAERS Safety Report 16804675 (Version 1)
Quarter: 2019Q3

REPORT INFORMATION
  Report Type: Spontaneous
  Country: IN (occurrence: IN)
  Receive Date: 20190913
  Receipt Date: 20190913
  Transmission Date: 20191005
  Serious: Yes (Other)
  Sender: FDA-Public Use
  Company Number: IN-UNICHEM PHARMACEUTICALS (USA) INC-UCM201909-000443

PATIENT
  Age: 25 Year
  Sex: Male

DRUGS (1)
  1. CETIRIZINE, HCL [Suspect]
     Active Substance: CETIRIZINE HYDROCHLORIDE
     Indication: RHINITIS ALLERGIC
     Dosage: CETIRIZINE 10 MG DAILY FOR THE PAST 6 YEARS, THE CUMULATIVE DOSE WAS 21.9 G

REACTIONS (1)
  - Cataract subcapsular [Unknown]
